FAERS Safety Report 5527026-9 (Version None)
Quarter: 2007Q4

REPORT INFORMATION
  Report Type: 
  Country: None (occurrence: None)
  Receive Date: 20071127
  Receipt Date: 20071115
  Transmission Date: 20080405
  Serious: Yes (Other)
  Sender: FDA-Public Use
  Company Number: US-ELI_LILLY_AND_COMPANY-US200711003790

PATIENT
  Sex: Female

DRUGS (4)
  1. PROZAC [Suspect]
  2. CYMBALTA [Concomitant]
  3. VICODIN [Concomitant]
  4. DARVOCET [Concomitant]

REACTIONS (5)
  - FAT TISSUE INCREASED [None]
  - GAIT DISTURBANCE [None]
  - MULTIPLE SCLEROSIS [None]
  - PAIN [None]
  - VERTIGO [None]
